FAERS Safety Report 5788063-2 (Version None)
Quarter: 2008Q2

REPORT INFORMATION
  Report Type: 
  Country: None (occurrence: None)
  Receive Date: 20080625
  Receipt Date: 20071120
  Transmission Date: 20081010
  Serious: Yes (Other)
  Sender: FDA-Public Use
  Company Number: US-BAYER-US-2007-042870

PATIENT
  Age: 90 Year
  Sex: Female

DRUGS (2)
  1. ULTRAVIST 300 [Suspect]
     Indication: UROGRAM
     Dosage: TOTAL DAILY DOSE: 60 ML  UNIT DOSE: 150 ML
     Route: 042
     Dates: start: 20071015, end: 20071015
  2. READI-CAT [Concomitant]
     Indication: UROGRAM
     Route: 048
     Dates: start: 20071015, end: 20071015

REACTIONS (2)
  - BACK PAIN [None]
  - HYPOAESTHESIA [None]
